FAERS Safety Report 18195240 (Version 4)
Quarter: 2021Q1

REPORT INFORMATION
  Report Type: Spontaneous
  Country: JP (occurrence: JP)
  Receive Date: 20200825
  Receipt Date: 20210318
  Transmission Date: 20210419
  Serious: Yes (Hospitalization)
  Sender: FDA-Public Use
  Company Number: JP-CELGENEUS-JPN-20200805197

PATIENT
  Age: 70 Year
  Sex: Male

DRUGS (83)
  1. DURVALUMAB. [Suspect]
     Active Substance: DURVALUMAB
     Indication: NON-SMALL CELL LUNG CANCER STAGE IV
     Dosage: 1500 MILLIGRAM
     Route: 042
     Dates: start: 20190731, end: 20190731
  2. CARBOPLATIN. [Suspect]
     Active Substance: CARBOPLATIN
     Dosage: 520 MILLIGRAM
     Route: 042
     Dates: start: 20190925, end: 20190925
  3. BLINDED OLAPARIB [Suspect]
     Active Substance: OLAPARIB
     Indication: NON-SMALL CELL LUNG CANCER STAGE IV
     Dosage: 600 MILLIGRAM
     Route: 048
     Dates: start: 20191127, end: 20191224
  4. BLINDED OLAPARIB [Suspect]
     Active Substance: OLAPARIB
     Dosage: 500 MILLIGRAM
     Route: 048
     Dates: start: 20200417, end: 20200511
  5. URIEF [Concomitant]
     Active Substance: SILODOSIN
     Dosage: 8 MILLIGRAM
     Route: 048
     Dates: start: 20190801
  6. OXINORM [Concomitant]
     Indication: CANCER PAIN
     Dosage: 2.5MG
     Route: 048
     Dates: start: 20200714, end: 20200805
  7. HACHIAZULE [Concomitant]
     Indication: GASTRITIS
     Route: 065
     Dates: start: 20200115, end: 20200417
  8. EVOXAC [Concomitant]
     Active Substance: CEVIMELINE HYDROCHLORIDE
     Dosage: 60 MILLIGRAM
     Route: 048
     Dates: start: 20200804, end: 20200805
  9. URSODEOXYCHOLIC ACID [Concomitant]
     Active Substance: URSODIOL
     Route: 048
     Dates: start: 20200811, end: 20200812
  10. GRANISETRON [Concomitant]
     Active Substance: GRANISETRON
     Dosage: 1 MILLIGRAM
     Route: 042
     Dates: start: 20191106, end: 20191106
  11. DEXART [Concomitant]
     Active Substance: DEXAMETHASONE SODIUM PHOSPHATE
     Indication: NAUSEA
     Dosage: 6.6 MILLIGRAM
     Route: 042
     Dates: start: 20190731, end: 20190731
  12. DEXART [Concomitant]
     Active Substance: DEXAMETHASONE SODIUM PHOSPHATE
     Dosage: 6.6 MILLIGRAM
     Route: 042
     Dates: start: 20190904, end: 20190904
  13. ABRAXANE [Suspect]
     Active Substance: PACLITAXEL
     Dosage: 148 MILLIGRAM
     Route: 042
     Dates: start: 20191106, end: 20191106
  14. DURVALUMAB. [Suspect]
     Active Substance: DURVALUMAB
     Dosage: 1500 MILLIGRAM
     Route: 042
     Dates: start: 20200512, end: 20200512
  15. BLINDED OLAPARIB [Suspect]
     Active Substance: OLAPARIB
     Dosage: 300 MILLIGRAM
     Route: 048
     Dates: start: 20200103, end: 20200103
  16. BLINDED OLAPARIB [Suspect]
     Active Substance: OLAPARIB
     Dosage: 400 MILLIGRAM
     Route: 048
     Dates: start: 20200526, end: 20200608
  17. BLINDED OLAPARIB [Suspect]
     Active Substance: OLAPARIB
     Dosage: 200 MILLIGRAM
     Route: 048
     Dates: start: 20200707, end: 20200707
  18. URIEF [Concomitant]
     Active Substance: SILODOSIN
     Indication: BENIGN PROSTATIC HYPERPLASIA
     Dosage: 4 MILLIGRAM
     Route: 048
     Dates: start: 20190731, end: 20190731
  19. DEXART [Concomitant]
     Active Substance: DEXAMETHASONE SODIUM PHOSPHATE
     Dosage: 6.6 MILLIGRAM
     Route: 042
     Dates: start: 20191106, end: 20191106
  20. METOCLOPRAMIDE. [Concomitant]
     Active Substance: METOCLOPRAMIDE
     Indication: FEBRILE NEUTROPENIA
     Route: 048
     Dates: start: 20200806, end: 20200812
  21. DURVALUMAB. [Suspect]
     Active Substance: DURVALUMAB
     Dosage: 1500 MILLIGRAM
     Route: 042
     Dates: start: 20191030, end: 20191030
  22. BLINDED OLAPARIB [Suspect]
     Active Substance: OLAPARIB
     Dosage: 300 MILLIGRAM
     Route: 048
     Dates: start: 20200219, end: 20200219
  23. BLINDED OLAPARIB [Suspect]
     Active Substance: OLAPARIB
     Dosage: 400 MILLIGRAM
     Route: 048
     Dates: start: 20200609, end: 20200706
  24. AVOLVE [Concomitant]
     Active Substance: DUTASTERIDE
     Indication: BENIGN PROSTATIC HYPERPLASIA
     Dosage: .5 MILLIGRAM
     Route: 048
     Dates: start: 2019, end: 20200805
  25. NOVAMIN [Concomitant]
     Indication: NAUSEA
     Dosage: 15 MILLIGRAM
     Route: 048
     Dates: start: 20200714
  26. DEXART [Concomitant]
     Active Substance: DEXAMETHASONE SODIUM PHOSPHATE
     Dosage: 6.6 MILLIGRAM
     Route: 042
     Dates: start: 20190925, end: 20190925
  27. ABRAXANE [Suspect]
     Active Substance: PACLITAXEL
     Dosage: 148 MILLIGRAM
     Route: 042
     Dates: start: 20191009, end: 20191009
  28. ABRAXANE [Suspect]
     Active Substance: PACLITAXEL
     Dosage: 148 MILLIGRAM
     Route: 042
     Dates: start: 20191030, end: 20191030
  29. DURVALUMAB. [Suspect]
     Active Substance: DURVALUMAB
     Dosage: 1500 MILLIGRAM
     Route: 042
     Dates: start: 20191127, end: 20191127
  30. DURVALUMAB. [Suspect]
     Active Substance: DURVALUMAB
     Dosage: 1500 MILLIGRAM
     Route: 042
     Dates: start: 20200219, end: 20200219
  31. RABEPRAZOLE SODIUM. [Concomitant]
     Active Substance: RABEPRAZOLE SODIUM
     Dosage: 10 MILLIGRAM
     Route: 048
     Dates: start: 20200131, end: 20200801
  32. EVOXAC [Concomitant]
     Active Substance: CEVIMELINE HYDROCHLORIDE
     Dosage: 30 MILLIGRAM
     Route: 048
     Dates: start: 20200708, end: 20200804
  33. GRANISETRON [Concomitant]
     Active Substance: GRANISETRON
     Indication: NAUSEA
     Dosage: 1 MILLIGRAM
     Route: 042
     Dates: start: 20190807, end: 20190807
  34. GRANISETRON [Concomitant]
     Active Substance: GRANISETRON
     Dosage: 1 MILLIGRAM
     Route: 042
     Dates: start: 20191002, end: 20191002
  35. DEXART [Concomitant]
     Active Substance: DEXAMETHASONE SODIUM PHOSPHATE
     Dosage: 6.6 MILLIGRAM
     Route: 042
     Dates: start: 20200803, end: 20200803
  36. VEEN?D [Concomitant]
     Active Substance: DEXTROSE
     Dosage: 1000 MILLILITER
     Route: 042
     Dates: start: 20200806, end: 20200809
  37. ABRAXANE [Suspect]
     Active Substance: PACLITAXEL
     Indication: NON-SMALL CELL LUNG CANCER STAGE IV
     Dosage: 151 MILLIGRAM
     Route: 042
     Dates: start: 20190731, end: 20190731
  38. ABRAXANE [Suspect]
     Active Substance: PACLITAXEL
     Dosage: 151 MILLIGRAM
     Route: 042
     Dates: start: 20190807, end: 20190807
  39. DURVALUMAB. [Suspect]
     Active Substance: DURVALUMAB
     Dosage: 1500 MILLIGRAM
     Route: 042
     Dates: start: 20190821, end: 20190821
  40. CARBOPLATIN. [Suspect]
     Active Substance: CARBOPLATIN
     Dosage: 520 MILLIGRAM
     Route: 042
     Dates: start: 20190821, end: 20190821
  41. CARBOPLATIN. [Suspect]
     Active Substance: CARBOPLATIN
     Dosage: 520 520 MILLIGRAM
     Route: 042
     Dates: start: 20191030, end: 20191030
  42. HACHIAZULE [Concomitant]
     Route: 065
     Dates: start: 20200418, end: 20200809
  43. EVOXAC [Concomitant]
     Active Substance: CEVIMELINE HYDROCHLORIDE
     Indication: DRY MOUTH
     Dosage: 60 MILLIGRAM
     Route: 048
     Dates: start: 20200311, end: 20200417
  44. GRANISETRON [Concomitant]
     Active Substance: GRANISETRON
     Dosage: 1 MILLIGRAM
     Route: 042
     Dates: start: 20200803, end: 20200803
  45. DEXART [Concomitant]
     Active Substance: DEXAMETHASONE SODIUM PHOSPHATE
     Dosage: 6.6 MILLIGRAM
     Route: 042
     Dates: start: 20190828, end: 20190828
  46. ABRAXANE [Suspect]
     Active Substance: PACLITAXEL
     Dosage: 148 MILLIGRAM
     Route: 042
     Dates: start: 20190925, end: 20190925
  47. DURVALUMAB. [Suspect]
     Active Substance: DURVALUMAB
     Dosage: 1500 MILLIGRAM
     Route: 042
     Dates: start: 20190925, end: 20190925
  48. DURVALUMAB. [Suspect]
     Active Substance: DURVALUMAB
     Dosage: 1500 MILLIGRAM
     Route: 042
     Dates: start: 20191225, end: 20191225
  49. BLINDED OLAPARIB [Suspect]
     Active Substance: OLAPARIB
     Dosage: 300 MILLIGRAM
     Route: 048
     Dates: start: 20200318, end: 20200318
  50. OXCODONE [Concomitant]
     Indication: CANCER PAIN
     Dosage: 5 MILLIGRAM
     Route: 048
     Dates: start: 20200713, end: 20200713
  51. EVOXAC [Concomitant]
     Active Substance: CEVIMELINE HYDROCHLORIDE
     Dosage: 60 MILLIGRAM
     Route: 048
     Dates: start: 20200418, end: 20200707
  52. EURAX H [Concomitant]
     Indication: PSORIASIS
     Route: 061
     Dates: start: 20200129
  53. URSODEOXYCHOLIC ACID [Concomitant]
     Active Substance: URSODIOL
     Dosage: 100 MILLIGRAM
     Route: 048
     Dates: start: 20200717, end: 20200722
  54. RESTAMIN [Concomitant]
     Active Substance: DIPHENHYDRAMINE
     Dosage: 50 MILLIGRAM
     Route: 048
     Dates: start: 20200805, end: 20200805
  55. GRANISETRON [Concomitant]
     Active Substance: GRANISETRON
     Dosage: 1 MILLIGRAM
     Route: 042
     Dates: start: 20190828, end: 20190828
  56. DEXART [Concomitant]
     Active Substance: DEXAMETHASONE SODIUM PHOSPHATE
     Dosage: 6.6 MILLIGRAM
     Route: 042
     Dates: start: 20190807, end: 20190807
  57. PRIMPERAN [Concomitant]
     Active Substance: METOCLOPRAMIDE HYDROCHLORIDE
     Indication: FEBRILE NEUTROPENIA
     Route: 042
     Dates: start: 20200811, end: 20200812
  58. LOXOPROFEN [Concomitant]
     Active Substance: LOXOPROFEN
     Indication: PYREXIA
     Route: 048
     Dates: start: 20200812, end: 20200816
  59. ABRAXANE [Suspect]
     Active Substance: PACLITAXEL
     Dosage: 148 MILLIGRAM
     Route: 042
     Dates: start: 20190821, end: 20190821
  60. ABRAXANE [Suspect]
     Active Substance: PACLITAXEL
     Dosage: 148 MILLIGRAM
     Route: 042
     Dates: start: 20190904, end: 20190904
  61. DURVALUMAB. [Suspect]
     Active Substance: DURVALUMAB
     Dosage: 1500 MILLIGRAM
     Route: 042
     Dates: start: 20200417, end: 20200417
  62. DURVALUMAB. [Suspect]
     Active Substance: DURVALUMAB
     Dosage: 1500 MILLIGRAM
     Route: 042
     Dates: start: 20200609, end: 20200609
  63. BLINDED OLAPARIB [Suspect]
     Active Substance: OLAPARIB
     Dosage: 600 MILLIGRAM
     Route: 048
     Dates: start: 20191225, end: 20200102
  64. URSODEOXYCHOLIC ACID [Concomitant]
     Active Substance: URSODIOL
     Dosage: 100 MILLIGRAM
     Route: 048
     Dates: start: 20200725, end: 20200805
  65. RESTAMIN [Concomitant]
     Active Substance: DIPHENHYDRAMINE
     Indication: HYPERSENSITIVITY
     Dosage: 50 MILLIGRAM
     Route: 048
     Dates: start: 20200803, end: 20200803
  66. DEXART [Concomitant]
     Active Substance: DEXAMETHASONE SODIUM PHOSPHATE
     Dosage: 6.6 MILLIGRAM
     Route: 042
     Dates: start: 20190821, end: 20190821
  67. DEXART [Concomitant]
     Active Substance: DEXAMETHASONE SODIUM PHOSPHATE
     Dosage: 6.6 MILLIGRAM
     Route: 042
     Dates: start: 20191009, end: 20191009
  68. DEXART [Concomitant]
     Active Substance: DEXAMETHASONE SODIUM PHOSPHATE
     Dosage: 6.6 MILLIGRAM
     Route: 042
     Dates: start: 20191030, end: 20191030
  69. ABRAXANE [Suspect]
     Active Substance: PACLITAXEL
     Dosage: 148 MILLIGRAM
     Route: 042
     Dates: start: 20190828, end: 20190828
  70. ABRAXANE [Suspect]
     Active Substance: PACLITAXEL
     Dosage: 148 MILLIGRAM
     Route: 042
     Dates: start: 20191002, end: 20191002
  71. DURVALUMAB. [Suspect]
     Active Substance: DURVALUMAB
     Dosage: 1500 MILLIGRAM
     Route: 042
     Dates: start: 20200318, end: 20200318
  72. CARBOPLATIN. [Suspect]
     Active Substance: CARBOPLATIN
     Indication: NON-SMALL CELL LUNG CANCER STAGE IV
     Dosage: 520 MILLIGRAM
     Route: 042
     Dates: start: 20190731, end: 20190731
  73. BLINDED OLAPARIB [Suspect]
     Active Substance: OLAPARIB
     Dosage: 600 MILLIGRAM
     Route: 048
     Dates: start: 20200220, end: 20200317
  74. BLINDED OLAPARIB [Suspect]
     Active Substance: OLAPARIB
     Dosage: 250 MILLIGRAM
     Route: 048
     Dates: start: 20200512, end: 20200512
  75. OXCODONE [Concomitant]
     Dosage: 5 MILLIGRAM
     Route: 048
     Dates: start: 20200714, end: 20200816
  76. RABEPRAZOLE SODIUM. [Concomitant]
     Active Substance: RABEPRAZOLE SODIUM
     Indication: GASTRITIS
     Dosage: 10 MILLIGRAM
     Route: 048
     Dates: start: 20200109, end: 20200130
  77. RABEPRAZOLE SODIUM. [Concomitant]
     Active Substance: RABEPRAZOLE SODIUM
     Indication: ABDOMINAL PAIN UPPER
     Dosage: 10 MILLIGRAM
     Route: 048
     Dates: start: 20200109, end: 20200130
  78. HIRUDOID [Concomitant]
     Active Substance: GLYCOSAMINOGLYCANS
     Indication: PSORIASIS
     Route: 061
     Dates: start: 20200129
  79. URSODEOXYCHOLIC ACID [Concomitant]
     Active Substance: URSODIOL
     Indication: AST/ALT RATIO ABNORMAL
     Dosage: 200 MILLIGRAM
     Route: 048
     Dates: start: 20200716, end: 20200716
  80. GRANISETRON [Concomitant]
     Active Substance: GRANISETRON
     Dosage: 1 MILLIGRAM
     Route: 042
     Dates: start: 20190904, end: 20190904
  81. GRANISETRON [Concomitant]
     Active Substance: GRANISETRON
     Dosage: 1 MILLIGRAM
     Route: 042
     Dates: start: 20191009, end: 20191009
  82. DEXART [Concomitant]
     Active Substance: DEXAMETHASONE SODIUM PHOSPHATE
     Dosage: 6.6 MILLIGRAM
     Route: 042
     Dates: start: 20191002, end: 20191002
  83. VEEN?D [Concomitant]
     Active Substance: DEXTROSE
     Indication: FEBRILE NEUTROPENIA
     Dosage: 500 MILLILITER
     Route: 042
     Dates: start: 20200805, end: 20200805

REACTIONS (1)
  - Type 1 diabetes mellitus [Not Recovered/Not Resolved]

NARRATIVE: CASE EVENT DATE: 20200813
